FAERS Safety Report 18760604 (Version 1)
Quarter: 2021Q1

REPORT INFORMATION
  Report Type: Spontaneous
  Country: US (occurrence: US)
  Receive Date: 20210119
  Receipt Date: 20210119
  Transmission Date: 20210419
  Serious: No
  Sender: FDA-Public Use
  Company Number: US-ROCHE-2491253

PATIENT
  Sex: Female
  Weight: 38.59 kg

DRUGS (3)
  1. RITUXAN [Suspect]
     Active Substance: RITUXIMAB
     Dosage: ONGOING: YES;1ST HALF DOSE
     Route: 042
     Dates: start: 20190924
  2. RITUXAN [Suspect]
     Active Substance: RITUXIMAB
     Indication: JUVENILE IDIOPATHIC ARTHRITIS
     Dosage: ONGOING:NO
     Route: 042
     Dates: start: 2006, end: 2011
  3. RITUXAN [Suspect]
     Active Substance: RITUXIMAB
     Dosage: SECOND HALF DOSE
     Route: 042
     Dates: start: 20191008

REACTIONS (5)
  - Unevaluable event [Unknown]
  - Abdominal distension [Unknown]
  - Joint swelling [Unknown]
  - Eating disorder [Unknown]
  - Urticaria [Unknown]
